FAERS Safety Report 12220111 (Version 1)
Quarter: 2016Q1

REPORT INFORMATION
  Report Type: Spontaneous
  Country: US (occurrence: None)
  Receive Date: 20160329
  Receipt Date: 20160329
  Transmission Date: 20160526
  Serious: Yes (Hospitalization)
  Sender: FDA-Public Use
  Company Number: None

PATIENT
  Age: 61 Year
  Sex: Male

DRUGS (1)
  1. WARFARIN [Suspect]
     Active Substance: WARFARIN
     Dates: start: 20150504, end: 20151021

REACTIONS (6)
  - Haematocrit decreased [None]
  - International normalised ratio increased [None]
  - Haemoglobin decreased [None]
  - Dizziness [None]
  - Haematoma [None]
  - Muscle haemorrhage [None]

NARRATIVE: CASE EVENT DATE: 20151021
